FAERS Safety Report 11662776 (Version 1)
Quarter: 2015Q4

REPORT INFORMATION
  Report Type: Spontaneous
  Country: CH (occurrence: CH)
  Receive Date: 20151027
  Receipt Date: 20151027
  Transmission Date: 20160304
  Serious: Yes (Other)
  Sender: FDA-Public Use
  Company Number: CH-009507513-1510CHE010973

PATIENT
  Age: 70 Year
  Sex: Female
  Weight: 54 kg

DRUGS (2)
  1. FLURAZEPAM [Concomitant]
     Active Substance: FLURAZEPAM\FLURAZEPAM HYDROCHLORIDE
     Dosage: UNK
     Dates: start: 1995
  2. REMERON [Suspect]
     Active Substance: MIRTAZAPINE
     Indication: DEPRESSION
     Dosage: DOSE: 15-45 MG, SLOWLY INCREASING, SOME TIME EVEN 60 MG
     Route: 048
     Dates: start: 2007

REACTIONS (8)
  - Syncope [Not Recovered/Not Resolved]
  - Myoclonus [Not Recovered/Not Resolved]
  - Femur fracture [Unknown]
  - Hypoglycaemia [Unknown]
  - Fall [Unknown]
  - Hypotension [Unknown]
  - Surgery [Unknown]
  - Concussion [Unknown]

NARRATIVE: CASE EVENT DATE: 2013
